FAERS Safety Report 17328070 (Version 1)
Quarter: 2020Q1

REPORT INFORMATION
  Report Type: Spontaneous
  Country: GB (occurrence: GB)
  Receive Date: 20200127
  Receipt Date: 20200127
  Transmission Date: 20200409
  Serious: Yes (Other)
  Sender: FDA-Public Use
  Company Number: GB-MYLANLABS-2020M1009482

PATIENT
  Age: 63 Year

DRUGS (9)
  1. CETIRIZINE [Concomitant]
     Active Substance: CETIRIZINE HYDROCHLORIDE
     Dosage: 10 MILLIGRAM, QD
  2. SALBUTAMOL [Concomitant]
     Active Substance: ALBUTEROL
     Dosage: PUFFS
  3. CODEINE [Concomitant]
     Active Substance: CODEINE
     Dosage: 240 MILLIGRAM, QD
  4. RAMIPRIL. [Concomitant]
     Active Substance: RAMIPRIL
     Dosage: AT NIGHT
  5. CITALOPRAM [Concomitant]
     Active Substance: CITALOPRAM HYDROBROMIDE
     Dosage: 30 MILLIGRAM, QD
  6. OMEPRAZOLE. [Suspect]
     Active Substance: OMEPRAZOLE
     Indication: PRODUCT USED FOR UNKNOWN INDICATION
     Dosage: 40 MILLIGRAM, QD
  7. RELVAR ELLIPTA                     /08236201/ [Concomitant]
     Active Substance: FLUTICASONE FUROATE\VILANTEROL TRIFENATATE
     Dosage: PUFF, 92MICROGRAMS/DOSE / 22MICROGRAMS/DOSE
  8. ATORVASTATIN [Concomitant]
     Active Substance: ATORVASTATIN
     Dosage: 20 MILLIGRAM, QD
  9. PARACETAMOL [Concomitant]
     Active Substance: ACETAMINOPHEN
     Dosage: UP TO 4 TIMES A DAY

REACTIONS (4)
  - Blood potassium decreased [Unknown]
  - Atrial fibrillation [Recovered/Resolved]
  - Vomiting [Unknown]
  - Hypomagnesaemia [Recovering/Resolving]
